FAERS Safety Report 5526135-8 (Version None)
Quarter: 2007Q4

REPORT INFORMATION
  Report Type: 
  Country: None (occurrence: None)
  Receive Date: 20071120
  Receipt Date: 20071107
  Transmission Date: 20080405
  Serious: Yes (Hospitalization)
  Sender: FDA-Public Use
  Company Number: GXKR2007TW09593

PATIENT
  Age: 83 Year
  Sex: Male

DRUGS (10)
  1. WARFARIN SODIUM [Suspect]
     Indication: ATRIAL THROMBOSIS
     Dosage: 2.5 MG, 1.25 MG, QD
  2. WARFARIN SODIUM [Suspect]
     Indication: ATRIAL THROMBOSIS
     Dosage: 2.5 MG, 1.25 MG, QD
     Dates: start: 19980101
  3. CHITOSAN(CHITOSAN, POLIGLUSAM) [Suspect]
     Dosage: 1200 MG,  BID
     Dates: start: 20060301
  4. CARVEDILOL [Concomitant]
  5. FUROSEMIDE [Concomitant]
  6. INDAPAMIDE [Concomitant]
  7. IRBESARTAN [Concomitant]
  8. GLICLAZIDE (GLICLAZIDE) [Concomitant]
  9. METFORMIN HCL [Concomitant]
  10. DIGOXIN [Concomitant]

REACTIONS (2)
  - DRUG INTERACTION [None]
  - INTERNATIONAL NORMALISED RATIO INCREASED [None]
